FAERS Safety Report 8791603 (Version 1)
Quarter: 2012Q4

REPORT INFORMATION
  Report Type: 
  Country: US (occurrence: US)
  Receive Date: 20120918
  Receipt Date: 20120918
  Transmission Date: 20130627
  Serious: Yes (Other)
  Sender: FDA-Public Use
  Company Number: US-JNJFOC-20120904510

PATIENT
  Age: 62 Year
  Sex: Male

DRUGS (4)
  1. XARELTO [Suspect]
     Indication: CEREBROVASCULAR ACCIDENT PROPHYLAXIS
     Route: 048
     Dates: start: 20120901, end: 201209
  2. XARELTO [Suspect]
     Indication: ATRIAL FIBRILLATION
     Route: 048
     Dates: start: 20120901, end: 201209
  3. UNFRACTIONATED HEPARIN [Concomitant]
     Indication: CARDIAC ABLATION
     Dates: end: 2012
  4. LOVENOX [Concomitant]
     Dates: start: 2012, end: 2012

REACTIONS (2)
  - Local swelling [Unknown]
  - Contusion [Unknown]
